FAERS Safety Report 15221514 (Version 3)
Quarter: 2021Q4

REPORT INFORMATION
  Report Type: Report from Study
  Country: US (occurrence: None)
  Receive Date: 20180731
  Receipt Date: 20211204
  Transmission Date: 20220303
  Serious: Yes (Hospitalization)
  Sender: FDA-Public Use
  Company Number: US-ROCHE-2159708

PATIENT
  Age: 45 Year
  Sex: Male
  Weight: 73.4 kg

DRUGS (10)
  1. PLACEBO [Suspect]
     Active Substance: UNSPECIFIED INGREDIENT
     Indication: Colorectal cancer metastatic
     Dosage: ON 11/JUN/2018, LAST DOSE OF PLACEBO WAS ADMINISTERED.
     Route: 042
     Dates: start: 20180502
  2. CAPECITABINE [Suspect]
     Active Substance: CAPECITABINE
     Indication: Colorectal cancer metastatic
     Dosage: ON 24/JUN/2018, LAST DOSE OF CAPECITABINE WAS ADMINISTERED.?TOTAL DOSE 2100 MG ?FOR 14 DAYS
     Route: 048
     Dates: start: 20180502
  3. CAPECITABINE [Suspect]
     Active Substance: CAPECITABINE
     Route: 048
     Dates: start: 2014, end: 201412
  4. BEVACIZUMAB [Suspect]
     Active Substance: BEVACIZUMAB
     Indication: Colorectal cancer metastatic
     Dosage: ON 11/JUN/2018, LAST DOSE OF BEVACIZUMAB WAS ADMINISTERED.?TOTAL DOSE 592.5 MG
     Route: 042
     Dates: start: 20180502
  5. INSULIN NOS [Concomitant]
     Active Substance: INSULIN NOS
  6. DEXTROSE [Concomitant]
     Active Substance: DEXTROSE
  7. ALBUTEROL [Concomitant]
     Active Substance: ALBUTEROL
  8. LEUCOVORIN [Concomitant]
     Active Substance: LEUCOVORIN
     Dates: start: 201602, end: 201610
  9. FLUOROURACIL [Concomitant]
     Active Substance: FLUOROURACIL
     Dates: start: 201602, end: 201610
  10. IRINOTECAN [Concomitant]
     Active Substance: IRINOTECAN
     Dates: start: 201602, end: 201610

REACTIONS (2)
  - Hyperkalaemia [Recovered/Resolved]
  - Acute kidney injury [Recovered/Resolved]

NARRATIVE: CASE EVENT DATE: 20180709
